FAERS Safety Report 6869276-5 (Version None)
Quarter: 2010Q3

REPORT INFORMATION
  Report Type: 
  Country: None (occurrence: None)
  Receive Date: 20100722
  Receipt Date: 20080717
  Transmission Date: 20110219
  Serious: No
  Sender: FDA-Public Use
  Company Number: US-PFIZER INC-2008060655

PATIENT

DRUGS (1)
  1. CHANTIX [Suspect]

REACTIONS (5)
  - ABDOMINAL PAIN UPPER [None]
  - DIARRHOEA [None]
  - DRUG DOSE OMISSION [None]
  - HEADACHE [None]
  - NAUSEA [None]
